FAERS Safety Report 4638054-X (Version None)
Quarter: 2005Q2

REPORT INFORMATION
  Report Type: 
  Country: None (occurrence: None)
  Receive Date: 20050415
  Receipt Date: 20050311
  Transmission Date: 20051028
  Serious: Yes (Hospitalization, Other)
  Sender: FDA-Public Use
  Company Number: US_0406103928

PATIENT
  Age: 56 Year
  Sex: Male
  Weight: 105 kg

DRUGS (21)
  1. ZYPREXA [Suspect]
     Indication: PSYCHOTIC DISORDER
     Dosage: 20 MG AT BEDTIME
     Dates: end: 20021127
  2. LITHIUM CARBONATE [Concomitant]
  3. SYMMETREL [Concomitant]
  4. ATIVAN [Concomitant]
  5. VIOXX [Concomitant]
  6. CELEBREX [Concomitant]
  7. ZOCOR (SIMVASTATIN RATIOPHARM) [Concomitant]
  8. ACIPHEX [Concomitant]
  9. HYDROCHLOROTHIAZIDE [Concomitant]
  10. TYLENOL [Concomitant]
  11. RABEPRAZOLE SODIUM [Concomitant]
  12. SIMVASTATIN ^ORIFARM^ (SIMVASTATIN RATIOPHARM) [Concomitant]
  13. PROTONIX [Concomitant]
  14. SUDAFED 12 HOUR [Concomitant]
  15. ROBITUSSIN [Concomitant]
  16. METFORMIN HCL [Concomitant]
  17. RISPERDAL [Concomitant]
  18. NICORETTE [Concomitant]
  19. BENALAPRIL (ENALAPRIL) [Concomitant]
  20. NICORETTE [Concomitant]
  21. KEFLEX [Concomitant]

REACTIONS (21)
  - AGGRESSION [None]
  - ALANINE AMINOTRANSFERASE INCREASED [None]
  - ANION GAP INCREASED [None]
  - BETA HAEMOLYTIC STREPTOCOCCAL INFECTION [None]
  - BLOOD ALKALINE PHOSPHATASE INCREASED [None]
  - BLOOD CALCIUM DECREASED [None]
  - BLOOD CHLORIDE DECREASED [None]
  - BLOOD SODIUM DECREASED [None]
  - BLOOD TRIGLYCERIDES INCREASED [None]
  - DIABETES MELLITUS [None]
  - DIABETIC KETOACIDOSIS [None]
  - GLOBULINS INCREASED [None]
  - HIGH DENSITY LIPOPROTEIN DECREASED [None]
  - MEAN CELL HAEMOGLOBIN CONCENTRATION INCREASED [None]
  - MONOCYTE COUNT INCREASED [None]
  - MOTOR DYSFUNCTION [None]
  - NEUTROPHIL COUNT INCREASED [None]
  - PENILE INFECTION [None]
  - RECTAL LESION [None]
  - VISION BLURRED [None]
  - WHITE BLOOD CELL COUNT INCREASED [None]
